FAERS Safety Report 5877197-X (Version None)
Quarter: 2008Q3

REPORT INFORMATION
  Report Type: 
  Country: None (occurrence: None)
  Receive Date: 20080908
  Receipt Date: 20080908
  Transmission Date: 20090109
  Serious: Yes (Life-Threatening)
  Sender: FDA-Public Use
  Company Number: None

PATIENT
  Age: 54 Year
  Sex: Male
  Weight: 113.3993 kg

DRUGS (1)
  1. FLEET PREP KIT #3  FLEET, PHOSPHO-SODA [Suspect]
     Indication: ULTRASOUND KIDNEY
     Dosage: 1 KIT, 1 DOSE
     Dates: start: 20080720, end: 20080720

REACTIONS (3)
  - ARRHYTHMIA [None]
  - CARDIAC DISORDER [None]
  - PULSE ABNORMAL [None]
